FAERS Safety Report 25200680 (Version 1)
Quarter: 2025Q2

REPORT INFORMATION
  Report Type: Spontaneous
  Country: US (occurrence: US)
  Receive Date: 20250415
  Receipt Date: 20250415
  Transmission Date: 20250716
  Serious: No
  Sender: BAYER
  Company Number: US-BAYER-2025A048386

PATIENT
  Sex: Female

DRUGS (2)
  1. MIRENA [Suspect]
     Active Substance: LEVONORGESTREL
     Indication: Heavy menstrual bleeding
     Dosage: 20?G/DAY
     Route: 015
     Dates: start: 202206
  2. ZEJULA [Concomitant]
     Active Substance: NIRAPARIB
     Indication: Ovarian cancer

REACTIONS (3)
  - Dyspepsia [None]
  - Constipation [None]
  - Pain in extremity [None]
